FAERS Safety Report 14596787 (Version 3)
Quarter: 2019Q1

REPORT INFORMATION
  Report Type: Report from Study
  Country: None (occurrence: US)
  Receive Date: 20180304
  Receipt Date: 20190103
  Transmission Date: 20190417
  Serious: No
  Sender: FDA-Public Use
  Company Number: US-ABBVIE-18K-163-2270848-00

PATIENT
  Age: 64 Year
  Sex: Male

DRUGS (1)
  1. DUOPA [Suspect]
     Active Substance: CARBIDOPA\LEVODOPA
     Indication: PARKINSON^S DISEASE
     Route: 050
     Dates: start: 201610

REACTIONS (6)
  - Parkinson^s disease [Unknown]
  - Stoma site haemorrhage [Not Recovered/Not Resolved]
  - Dyskinesia [Unknown]
  - Mobility decreased [Unknown]
  - Movement disorder [Unknown]
  - Mobility decreased [Not Recovered/Not Resolved]

NARRATIVE: CASE EVENT DATE: 20181210
